FAERS Safety Report 4466440-X (Version None)
Quarter: 2004Q4

REPORT INFORMATION
  Report Type: 
  Country: None (occurrence: None)
  Receive Date: 20041005
  Receipt Date: 20040929
  Transmission Date: 20050328
  Serious: Yes (Hospitalization)
  Sender: FDA-Public Use
  Company Number: FR-MERCK-0409FRA00102

PATIENT
  Age: 73 Year
  Sex: Female

DRUGS (5)
  1. FOSAMAX [Suspect]
     Indication: OSTEOPOROSIS
     Route: 048
     Dates: end: 20040815
  2. ALTHIAZIDE AND SPIRONOLACTONE [Suspect]
     Route: 048
     Dates: end: 20040815
  3. BETAXOLOL HYDROCHLORIDE [Concomitant]
     Route: 048
  4. OMEPRAZOLE [Suspect]
     Route: 048
     Dates: end: 20040815
  5. THIOCOLCHICOSIDE [Suspect]
     Route: 048
     Dates: end: 20040815

REACTIONS (2)
  - COMPUTERISED TOMOGRAM ABNORMAL [None]
  - PANCREATITIS [None]
